FAERS Safety Report 7844876-4 (Version None)
Quarter: 2011Q4

REPORT INFORMATION
  Report Type: 
  Country: None (occurrence: None)
  Receive Date: 20111025
  Receipt Date: 20111021
  Transmission Date: 20120403
  Serious: Yes (Hospitalization)
  Sender: FDA-Public Use
  Company Number: JP-GLAXOSMITHKLINE-R0015383A

PATIENT
  Sex: Female
  Weight: 50 kg

DRUGS (2)
  1. FLUTICASONE PROPIONATE [Suspect]
     Indication: ASTHMA
     Dosage: 200MCG PER DAY
     Route: 055
     Dates: start: 20051128, end: 20090101
  2. BLINDED VACCINE [Suspect]
     Route: 030
     Dates: start: 20101122, end: 20101122

REACTIONS (1)
  - ASTHMA [None]
